FAERS Safety Report 4483657-9 (Version None)
Quarter: 2004Q4

REPORT INFORMATION
  Report Type: 
  Country: None (occurrence: None)
  Receive Date: 20041022
  Receipt Date: 20041022
  Transmission Date: 20050328
  Serious: Yes (Life-Threatening, Hospitalization, Other)
  Sender: FDA-Public Use
  Company Number: None

PATIENT
  Sex: Female
  Weight: 76.2043 kg

DRUGS (1)
  1. VIOXX [Suspect]
     Indication: ARTHRITIS
     Dosage: 25MG 1 X DAY ORALLY
     Route: 048
     Dates: start: 20000101, end: 20040101

REACTIONS (2)
  - FEAR [None]
  - GASTRIC ULCER PERFORATION [None]
